FAERS Safety Report 8581804-0 (Version None)
Quarter: 2012Q3

REPORT INFORMATION
  Report Type: 
  Country: None (occurrence: None)
  Receive Date: 20120809
  Receipt Date: 20120801
  Transmission Date: 20120928
  Serious: Yes (Hospitalization)
  Sender: FDA-Public Use
  Company Number: PHHY2012CA068048

PATIENT
  Sex: Female
  Weight: 69 kg

DRUGS (8)
  1. ESOMEPRAZOLE [Suspect]
     Dosage: 40 MG, DAILY
     Route: 048
  2. NORVASC [Suspect]
     Dosage: 1 DF, DAILY
     Route: 048
  3. LIPITOR [Suspect]
     Dosage: 20 MG, QHS
     Route: 048
  4. IRBESARTAN [Suspect]
     Indication: HYPERTENSION
     Dosage: 1 DF, DAILY
     Route: 048
     Dates: start: 20110101
  5. METFORMIN HCL [Suspect]
     Dosage: 850 MG, TID
     Route: 048
  6. ASPIRIN [Suspect]
     Dosage: 80 MG, DAILY
     Route: 048
  7. RASILEZ [Suspect]
     Indication: HYPERTENSION
     Dosage: 1 DF, DAILY
     Route: 048
     Dates: start: 20111205, end: 20120202
  8. JANUVIA [Suspect]
     Dosage: 1 DF, DAILY
     Route: 048

REACTIONS (11)
  - ANXIETY [None]
  - AFFECT LABILITY [None]
  - MUSCULAR WEAKNESS [None]
  - MUSCLE SPASTICITY [None]
  - DYSPHAGIA [None]
  - APHASIA [None]
  - CONFUSIONAL STATE [None]
  - PERSONALITY DISORDER [None]
  - CEREBROVASCULAR ACCIDENT [None]
  - HEMIPARESIS [None]
  - HEMIPLEGIA [None]
